FAERS Safety Report 6969621-6 (Version None)
Quarter: 2010Q3

REPORT INFORMATION
  Report Type: 
  Country: None (occurrence: None)
  Receive Date: 20100907
  Receipt Date: 20100901
  Transmission Date: 20110219
  Serious: Yes (Other)
  Sender: FDA-Public Use
  Company Number: JP-BRISTOL-MYERS SQUIBB COMPANY-15122393

PATIENT
  Age: 37 Year
  Sex: Female

DRUGS (6)
  1. ABILIFY [Suspect]
     Indication: SCHIZOPHRENIA
     Dosage: 4MAY-10MAY:6MG;7DY 11MAY-14MAY:12MG:4DY 15MAY-17MAY:18MG;3DY 18MAY-28JUN10:30MG;42DY STRH:.1%
     Route: 048
     Dates: start: 20100504, end: 20100628
  2. MEILAX [Concomitant]
     Dosage: TAB
     Dates: start: 20100506, end: 20100506
  3. MYSLEE [Concomitant]
     Dosage: TAB
     Dates: start: 20100504
  4. DORAL [Concomitant]
     Dosage: TAB
     Dates: start: 20100506
  5. RISPERDAL [Concomitant]
     Dosage: ORAL SOLUTION.
     Route: 048
     Dates: start: 20100527, end: 20100712
  6. LORAZEPAM [Concomitant]
     Dosage: FORM:TAB
     Dates: start: 20100527

REACTIONS (2)
  - ABORTION INDUCED [None]
  - PREGNANCY [None]
